FAERS Safety Report 5441967-2 (Version None)
Quarter: 2007Q3

REPORT INFORMATION
  Report Type: 
  Country: None (occurrence: None)
  Receive Date: 20070830
  Receipt Date: 20070830
  Transmission Date: 20080115
  Serious: Yes (Hospitalization)
  Sender: FDA-Public Use
  Company Number: None

PATIENT
  Sex: Male
  Weight: 106 kg

DRUGS (6)
  1. MERCAPTOPURINE [Suspect]
     Dosage: 5250 MG
     Dates: end: 20070624
  2. METHOTREXATE [Suspect]
     Dosage: 7939.75 MG
     Dates: end: 20070619
  3. VINCRISTINE SULFATE [Suspect]
     Dosage: 6 MG
     Dates: end: 20070618
  4. LEUCOVORIN CALCIUM [Suspect]
     Dosage: 386 MG
     Dates: end: 20070621
  5. BACTRIM DS [Suspect]
     Dosage: 28000 MG
     Dates: end: 20070806
  6. PROTONIX [Concomitant]

REACTIONS (5)
  - BLOOD CULTURE POSITIVE [None]
  - CHILLS [None]
  - FATIGUE [None]
  - LIVER FUNCTION TEST ABNORMAL [None]
  - STAPHYLOCOCCAL INFECTION [None]
